FAERS Safety Report 18191347 (Version 2)
Quarter: 2020Q3

REPORT INFORMATION
  Report Type: Other
  Country: US (occurrence: US)
  Receive Date: 20200825
  Receipt Date: 20200908
  Transmission Date: 20201103
  Serious: Yes (Death, Hospitalization)
  Sender: FDA-Public Use
  Company Number: US-ROCHE-2628717

PATIENT
  Age: 50 Year
  Sex: Female
  Weight: 102 kg

DRUGS (3)
  1. CATHFLO ACTIVASE [Suspect]
     Active Substance: ALTEPLASE
     Indication: COMPLICATION ASSOCIATED WITH DEVICE
     Route: 065
  2. NOREPINEPHRINE. [Concomitant]
     Active Substance: NOREPINEPHRINE
  3. ACTEMRA [Suspect]
     Active Substance: TOCILIZUMAB
     Indication: COVID-19 PNEUMONIA
     Route: 040
     Dates: start: 20200425, end: 20200425

REACTIONS (4)
  - Intentional product use issue [Unknown]
  - Off label use [Unknown]
  - Multiple organ dysfunction syndrome [Unknown]
  - Pneumonia bacterial [Fatal]

NARRATIVE: CASE EVENT DATE: 20200522
